FAERS Safety Report 21035224 (Version 1)
Quarter: 2022Q3

REPORT INFORMATION
  Report Type: Report from Study
  Country: EG (occurrence: EG)
  Receive Date: 20220701
  Receipt Date: 20220701
  Transmission Date: 20221026
  Serious: Yes (Other)
  Sender: FDA-Public Use
  Company Number: EG-NOVARTISPH-NVSC2022EG146812

PATIENT
  Sex: Male

DRUGS (2)
  1. HYRIMOZ [Suspect]
     Active Substance: ADALIMUMAB-ADAZ
     Indication: Juvenile idiopathic arthritis
     Dosage: 1 PREFILLED SYRINGE, QOD (EVERY OTHER DAY)
     Route: 058
     Dates: start: 2021
  2. FOLIC ACID [Concomitant]
     Active Substance: FOLIC ACID
     Indication: Product used for unknown indication
     Dosage: UNK
     Route: 065

REACTIONS (7)
  - Cataract [Unknown]
  - Vision blurred [Unknown]
  - Eye inflammation [Unknown]
  - Gait disturbance [Unknown]
  - Movement disorder [Unknown]
  - Inflammation [Unknown]
  - Hypersensitivity [Unknown]
